FAERS Safety Report 6733261-4 (Version None)
Quarter: 2010Q2

REPORT INFORMATION
  Report Type: 
  Country: None (occurrence: None)
  Receive Date: 20100520
  Receipt Date: 20100517
  Transmission Date: 20101027
  Serious: Yes (Hospitalization, Other)
  Sender: FDA-Public Use
  Company Number: US-ASTRAZENECA-2007UW08594

PATIENT
  Age: 18760 Day
  Sex: Male
  Weight: 83.9 kg

DRUGS (6)
  1. SEROQUEL [Suspect]
     Indication: SLEEP DISORDER
     Route: 048
     Dates: start: 19980101, end: 20070101
  2. SEROQUEL [Suspect]
     Indication: ANXIETY
     Route: 048
     Dates: start: 19980101, end: 20070101
  3. SEROQUEL [Suspect]
     Dosage: 75-100 MG
     Route: 048
     Dates: start: 20091228
  4. SEROQUEL [Suspect]
     Dosage: 75-100 MG
     Route: 048
     Dates: start: 20091228
  5. HALDOL [Concomitant]
  6. VYTORIN [Concomitant]
     Dosage: 10/20 MG ONE A DAY
     Dates: start: 20070604

REACTIONS (6)
  - ANKLE FRACTURE [None]
  - DIABETES MELLITUS [None]
  - DIABETIC NEUROPATHY [None]
  - FOOT FRACTURE [None]
  - INSULIN-REQUIRING TYPE 2 DIABETES MELLITUS [None]
  - TYPE 2 DIABETES MELLITUS [None]
